FAERS Safety Report 20141547 (Version 2)
Quarter: 2021Q4

REPORT INFORMATION
  Report Type: Spontaneous
  Country: US (occurrence: US)
  Receive Date: 20211202
  Receipt Date: 20211222
  Transmission Date: 20220303
  Serious: No
  Sender: FDA-Public Use
  Company Number: US-ORGANON-O2111USA002556

PATIENT
  Age: 16 Year
  Sex: Female
  Weight: 126.08 kg

DRUGS (1)
  1. NEXPLANON [Suspect]
     Active Substance: ETONOGESTREL
     Dosage: 68MILLIGRAM, ONCE, LEFT ARM
     Route: 059
     Dates: start: 20210722, end: 20211201

REACTIONS (2)
  - Device breakage [Recovered/Resolved]
  - Anxiety [Unknown]

NARRATIVE: CASE EVENT DATE: 20211101
